FAERS Safety Report 8393936-0 (Version None)
Quarter: 2012Q2

REPORT INFORMATION
  Report Type: 
  Country: None (occurrence: None)
  Receive Date: 20120516
  Receipt Date: 20120507
  Transmission Date: 20120825
  Serious: Yes (Death)
  Sender: FDA-Public Use
  Company Number: 2012SP024365

PATIENT
  Age: 45 Year
  Sex: Male

DRUGS (10)
  1. GEMTUZUMAB OZOGAMICIN [Concomitant]
  2. MYCOPHENOLATE MOFETIL [Concomitant]
  3. SIROLIMUS [Concomitant]
  4. CYCLOSPORINE [Concomitant]
  5. PREDNISONE [Concomitant]
  6. MIRTAZAPINE [Suspect]
     Indication: PROGRESSIVE MULTIFOCAL LEUKOENCEPHALOPATHY
     Dosage: 15 MG;Q12H;NGT
  7. FLUDARABINE PHOSPHATE [Concomitant]
  8. BUSULFAN [Concomitant]
  9. TACROLIMUS [Concomitant]
  10. ACETYLSALICYLIC ACID SRT [Concomitant]

REACTIONS (6)
  - NEUROLOGICAL DECOMPENSATION [None]
  - IIIRD NERVE DISORDER [None]
  - DISEASE PROGRESSION [None]
  - CRANIAL NERVE DISORDER [None]
  - DRUG INEFFECTIVE [None]
  - HEMIPARESIS [None]
